FAERS Safety Report 7422941-3 (Version None)
Quarter: 2011Q1

REPORT INFORMATION
  Report Type: 
  Country: None (occurrence: None)
  Receive Date: 20110328
  Receipt Date: 20110318
  Transmission Date: 20110831
  Serious: Yes (Hospitalization)
  Sender: FDA-Public Use
  Company Number: 2010026118

PATIENT
  Age: 57 Year
  Sex: Male

DRUGS (8)
  1. NOVOLOG [Concomitant]
  2. SANDOGLOBULIN [Suspect]
     Indication: ENCEPHALITIS
     Dosage: INTRAVENOUS (NOT OTHERWISE SPECIFIED)
     Route: 042
     Dates: start: 20100723, end: 20100727
  3. AMLOR (AMLODIPINE BESILATE) [Concomitant]
  4. EUPRESSYL (URAPIDIL) [Concomitant]
  5. LANTUS [Concomitant]
  6. ALISKIREN [Concomitant]
  7. SYMBICORT [Concomitant]
  8. ACETAMINOPHEN [Concomitant]

REACTIONS (3)
  - INFECTION [None]
  - MYALGIA [None]
  - PYREXIA [None]
